FAERS Safety Report 7877105-6 (Version None)
Quarter: 2011Q4

REPORT INFORMATION
  Report Type: 
  Country: None (occurrence: None)
  Receive Date: 20111031
  Receipt Date: 20111027
  Transmission Date: 20120403
  Serious: Yes (Life-Threatening)
  Sender: FDA-Public Use
  Company Number: PHHY2011GB70866

PATIENT
  Age: 49 Year
  Sex: Female
  Weight: 83.7 kg

DRUGS (4)
  1. TRAMADOL HCL [Concomitant]
  2. LEFLUNOMIDE [Suspect]
     Indication: PSORIATIC ARTHROPATHY
     Dosage: 20 MG, QD
     Route: 048
     Dates: start: 20100107
  3. ACETAMINOPHEN [Concomitant]
  4. ZOPICLONE [Concomitant]

REACTIONS (3)
  - RENAL CELL CARCINOMA STAGE III [None]
  - BONE LESION [None]
  - ARTHRALGIA [None]
